FAERS Safety Report 16250912 (Version 1)
Quarter: 2019Q2

REPORT INFORMATION
  Report Type: Report from Study
  Country: CO (occurrence: CO)
  Receive Date: 20190429
  Receipt Date: 20190429
  Transmission Date: 20190711
  Serious: Yes (Hospitalization, Other)
  Sender: FDA-Public Use
  Company Number: CO-AMGEN-COLSL2018156013

PATIENT
  Age: 63 Year
  Sex: Female

DRUGS (3)
  1. VECTIBIX [Suspect]
     Active Substance: PANITUMUMAB
     Indication: COLORECTAL CANCER METASTATIC
     Dosage: 500 MILLIGRAM, Q2WK
     Route: 042
     Dates: start: 20180305, end: 20190306
  2. IRINOTECAN [Concomitant]
     Active Substance: IRINOTECAN
     Dosage: UNK
  3. NATURAL TEARS [Concomitant]
     Active Substance: POLYVINYL ALCOHOL\POVIDONE
     Dosage: UNK UNK, Q12H (1 DROP IN EACH EYE)
     Route: 047
     Dates: start: 20181107

REACTIONS (17)
  - Treatment failure [Not Recovered/Not Resolved]
  - Pruritus [Unknown]
  - Acne [Not Recovered/Not Resolved]
  - Neck pain [Recovered/Resolved]
  - Drug hypersensitivity [Not Recovered/Not Resolved]
  - Flushing [Recovering/Resolving]
  - Carcinoembryonic antigen increased [Not Recovered/Not Resolved]
  - Rash [Not Recovered/Not Resolved]
  - Eye pain [Recovered/Resolved]
  - Back pain [Not Recovered/Not Resolved]
  - Skin lesion [Unknown]
  - Feeling hot [Recovered/Resolved]
  - Headache [Recovered/Resolved]
  - Decreased immune responsiveness [Not Recovered/Not Resolved]
  - Burning sensation [Recovering/Resolving]
  - Madarosis [Not Recovered/Not Resolved]
  - Pain of skin [Not Recovered/Not Resolved]

NARRATIVE: CASE EVENT DATE: 2018
